FAERS Safety Report 5329273-8 (Version None)
Quarter: 2007Q2

REPORT INFORMATION
  Report Type: 
  Country: None (occurrence: None)
  Receive Date: 20070518
  Receipt Date: 20070507
  Transmission Date: 20071010
  Serious: Yes (Death)
  Sender: FDA-Public Use
  Company Number: PL-PFIZER INC-2007037674

PATIENT
  Sex: Male
  Weight: 80 kg

DRUGS (11)
  1. SU-011,248 [Suspect]
     Route: 048
     Dates: start: 20070119, end: 20070426
  2. LISINOPRIL [Concomitant]
     Dosage: DAILY DOSE:10MG
     Route: 048
  3. METOCARD [Concomitant]
     Route: 048
  4. FORMOTEROL FUMARATE [Concomitant]
  5. METOCLOPRAMIDE [Concomitant]
     Route: 048
  6. OMEPRAZOLE [Concomitant]
     Dosage: DAILY DOSE:20MG
     Route: 048
  7. EUTHYROX [Concomitant]
     Dosage: DAILY DOSE:100MG
     Route: 048
  8. FRAXIPARINE [Concomitant]
     Route: 058
  9. DICLOBERL - SLOW RELEASE [Concomitant]
     Route: 048
  10. DEXAVEN [Concomitant]
     Dosage: DAILY DOSE:4MG
     Route: 042
  11. THYROZOL [Concomitant]
     Dosage: DAILY DOSE:20MG
     Route: 048
     Dates: start: 20070131, end: 20070412

REACTIONS (1)
  - ASTHENIA [None]
